FAERS Safety Report 8371492-0 (Version None)
Quarter: 2012Q2

REPORT INFORMATION
  Report Type: 
  Country: None (occurrence: None)
  Receive Date: 20120518
  Receipt Date: 20120510
  Transmission Date: 20120825
  Serious: Yes (Other)
  Sender: FDA-Public Use
  Company Number: TR-CUBIST-2012S1000420

PATIENT
  Age: 67 Year
  Sex: Female
  Weight: 75 kg

DRUGS (4)
  1. ALL OTHER THERAPEUTIC PRODUCTS [Concomitant]
     Indication: PRODUCT USED FOR UNKNOWN INDICATION
     Dosage: DOSE UNIT:U
     Dates: start: 20120405, end: 20120427
  2. CUBICIN [Suspect]
     Indication: SOFT TISSUE INFECTION
     Route: 042
     Dates: start: 20120424, end: 20120426
  3. CUBICIN [Suspect]
     Route: 042
     Dates: start: 20120424, end: 20120426
  4. LASOPRAZOLE [Concomitant]
     Indication: PRODUCT USED FOR UNKNOWN INDICATION
     Dosage: DOSE UNIT:U
     Dates: start: 20120405

REACTIONS (4)
  - THROMBOCYTOPENIA [None]
  - ANAEMIA [None]
  - NEUTROPENIA [None]
  - HEPATIC ENZYME INCREASED [None]
